FAERS Safety Report 10676576 (Version 1)
Quarter: 2014Q4

REPORT INFORMATION
  Report Type: Spontaneous
  Country: US (occurrence: None)
  Receive Date: 20141223
  Receipt Date: 20141223
  Transmission Date: 20150529
  Serious: No
  Sender: FDA-Public Use
  Company Number: None

PATIENT
  Age: 23 Year
  Sex: Male

DRUGS (1)
  1. MINOXIDIL. [Suspect]
     Active Substance: MINOXIDIL
     Indication: ANDROGENETIC ALOPECIA
     Dosage: APPLIED TO A SURFACE, USUALLY THE SKIN

REACTIONS (5)
  - Erection increased [None]
  - Libido decreased [None]
  - Erectile dysfunction [None]
  - Libido increased [None]
  - Sexual activity increased [None]
